FAERS Safety Report 8151600 (Version 8)
Quarter: 2017Q1

REPORT INFORMATION
  Report Type: Spontaneous
  Country: US (occurrence: US)
  Receive Date: 20110922
  Receipt Date: 20170215
  Transmission Date: 20170429
  Serious: Yes (Other)
  Sender: FDA-Public Use
  Company Number: US-ASTRAZENECA-2011SE22706

PATIENT
  Age: 21017 Day
  Sex: Male
  Weight: 99.8 kg

DRUGS (33)
  1. SEROQUEL [Suspect]
     Active Substance: QUETIAPINE FUMARATE
     Indication: BIPOLAR DISORDER
     Route: 048
     Dates: start: 201007
  2. SEROQUEL [Suspect]
     Active Substance: QUETIAPINE FUMARATE
     Indication: DEPRESSION
     Route: 048
     Dates: start: 201007
  3. SEROQUEL [Suspect]
     Active Substance: QUETIAPINE FUMARATE
     Indication: DEPRESSION
     Route: 048
  4. SEROQUEL [Suspect]
     Active Substance: QUETIAPINE FUMARATE
     Indication: ANXIETY
     Route: 048
  5. SEROQUEL [Suspect]
     Active Substance: QUETIAPINE FUMARATE
     Indication: DEPRESSION
     Dosage: 300.0MG UNKNOWN
     Route: 048
     Dates: start: 2012
  6. SEROQUEL [Suspect]
     Active Substance: QUETIAPINE FUMARATE
     Indication: DEPRESSION
     Dosage: UNKNOWN
     Route: 048
  7. CLONADINE [Concomitant]
  8. KLONAZAPAM [Concomitant]
  9. ZOLPIDEM [Concomitant]
     Active Substance: ZOLPIDEM\ZOLPIDEM TARTRATE
  10. ENALIPRIL [Concomitant]
     Indication: BLOOD PRESSURE ABNORMAL
  11. SEROQUEL [Suspect]
     Active Substance: QUETIAPINE FUMARATE
     Indication: ATTENTION DEFICIT/HYPERACTIVITY DISORDER
     Dosage: 300.0MG UNKNOWN
     Route: 048
  12. SEROQUEL [Suspect]
     Active Substance: QUETIAPINE FUMARATE
     Indication: ANXIETY
     Dosage: UNKNOWN
     Route: 048
  13. SEROQUEL [Suspect]
     Active Substance: QUETIAPINE FUMARATE
     Indication: ANXIETY
     Route: 048
     Dates: start: 201007
  14. SEROQUEL [Suspect]
     Active Substance: QUETIAPINE FUMARATE
     Indication: BIPOLAR DISORDER
     Route: 048
  15. LEVOTHYROXINE. [Concomitant]
     Active Substance: LEVOTHYROXINE
     Indication: THYROID DISORDER
  16. SEROQUEL [Suspect]
     Active Substance: QUETIAPINE FUMARATE
     Indication: ATTENTION DEFICIT/HYPERACTIVITY DISORDER
     Route: 048
  17. SEROQUEL [Suspect]
     Active Substance: QUETIAPINE FUMARATE
     Indication: DEPRESSION
     Dosage: 300MG ONE HALF TABLET IN THE MORNING , ONE HALF TABLET AT LUNCH AND 2 TABLETS AT BEDTIME UNKNOWN
     Route: 048
     Dates: start: 2010, end: 20131108
  18. SEROQUEL [Suspect]
     Active Substance: QUETIAPINE FUMARATE
     Indication: ATTENTION DEFICIT/HYPERACTIVITY DISORDER
     Dosage: UNKNOWN
     Route: 048
  19. SEROQUEL [Suspect]
     Active Substance: QUETIAPINE FUMARATE
     Indication: BIPOLAR DISORDER
     Dosage: 300.0MG UNKNOWN
     Route: 048
  20. SEROQUEL [Suspect]
     Active Substance: QUETIAPINE FUMARATE
     Indication: ATTENTION DEFICIT/HYPERACTIVITY DISORDER
     Dosage: 300MG ONE HALF TABLET IN THE MORNING , ONE HALF TABLET AT LUNCH AND 2 TABLETS AT BEDTIME UNKNOWN
     Route: 048
     Dates: start: 2010, end: 20131108
  21. SEROQUEL [Suspect]
     Active Substance: QUETIAPINE FUMARATE
     Indication: ATTENTION DEFICIT/HYPERACTIVITY DISORDER
     Route: 048
     Dates: start: 201007
  22. SEROQUEL [Suspect]
     Active Substance: QUETIAPINE FUMARATE
     Indication: DEPRESSION
     Dosage: 300.0MG UNKNOWN
     Route: 048
  23. SEROQUEL [Suspect]
     Active Substance: QUETIAPINE FUMARATE
     Indication: ANXIETY
     Dosage: 300.0MG UNKNOWN
     Route: 048
  24. SEROQUEL [Suspect]
     Active Substance: QUETIAPINE FUMARATE
     Indication: BIPOLAR DISORDER
     Dosage: 300MG ONE HALF TABLET IN THE MORNING , ONE HALF TABLET AT LUNCH AND 2 TABLETS AT BEDTIME UNKNOWN
     Route: 048
     Dates: start: 2010, end: 20131108
  25. SEROQUEL [Suspect]
     Active Substance: QUETIAPINE FUMARATE
     Indication: BIPOLAR DISORDER
     Dosage: 300.0MG UNKNOWN
     Route: 048
     Dates: start: 2012
  26. SEROQUEL [Suspect]
     Active Substance: QUETIAPINE FUMARATE
     Indication: ANXIETY
     Dosage: 300.0MG UNKNOWN
     Route: 048
     Dates: start: 2012
  27. STRATTERA [Concomitant]
     Active Substance: ATOMOXETINE HYDROCHLORIDE
     Indication: ATTENTION DEFICIT/HYPERACTIVITY DISORDER
     Route: 048
     Dates: start: 2012, end: 201311
  28. MELATONIN [Concomitant]
     Active Substance: MELATONIN
  29. SEROQUEL [Suspect]
     Active Substance: QUETIAPINE FUMARATE
     Indication: ANXIETY
     Dosage: 300MG ONE HALF TABLET IN THE MORNING , ONE HALF TABLET AT LUNCH AND 2 TABLETS AT BEDTIME UNKNOWN
     Route: 048
     Dates: start: 2010, end: 20131108
  30. SEROQUEL [Suspect]
     Active Substance: QUETIAPINE FUMARATE
     Indication: ATTENTION DEFICIT/HYPERACTIVITY DISORDER
     Dosage: 300.0MG UNKNOWN
     Route: 048
     Dates: start: 2012
  31. SEROQUEL [Suspect]
     Active Substance: QUETIAPINE FUMARATE
     Indication: BIPOLAR DISORDER
     Dosage: UNKNOWN
     Route: 048
  32. MIRTAZAPINE. [Concomitant]
     Active Substance: MIRTAZAPINE
  33. ALLERGY MEDICATION [Concomitant]
     Active Substance: DIPHENHYDRAMINE HYDROCHLORIDE

REACTIONS (18)
  - Throat cancer [Unknown]
  - Amnesia [Unknown]
  - Anxiety [Unknown]
  - Product use issue [Unknown]
  - Abnormal behaviour [Unknown]
  - Frustration tolerance decreased [Unknown]
  - Impaired work ability [Unknown]
  - Drug dose omission [Not Recovered/Not Resolved]
  - Depressed mood [Unknown]
  - Disturbance in attention [Unknown]
  - Withdrawal syndrome [Unknown]
  - Insomnia [Unknown]
  - Mental disorder [Unknown]
  - Malaise [Unknown]
  - Communication disorder [Unknown]
  - Off label use [Unknown]
  - Ulnar nerve injury [Unknown]
  - Mental fatigue [Unknown]

NARRATIVE: CASE EVENT DATE: 20131108
